FAERS Safety Report 19117638 (Version 1)
Quarter: 2021Q2

REPORT INFORMATION
  Report Type: Spontaneous
  Country: US (occurrence: US)
  Receive Date: 20210409
  Receipt Date: 20210409
  Transmission Date: 20210717
  Serious: No
  Sender: FDA-Public Use
  Company Number: US-SLATE RUN PHARMACEUTICALS-21US000444

PATIENT

DRUGS (1)
  1. DESVENLAFAXINE EXTENDED?RELEASE [Suspect]
     Active Substance: DESVENLAFAXINE SUCCINATE
     Indication: DEPRESSION
     Dosage: 125 MILLIGRAM, QD
     Route: 065

REACTIONS (1)
  - Off label use [Not Recovered/Not Resolved]
